FAERS Safety Report 12570027 (Version 1)
Quarter: 2016Q3

REPORT INFORMATION
  Report Type: Spontaneous
  Country: US (occurrence: None)
  Receive Date: 20160718
  Receipt Date: 20160718
  Transmission Date: 20161109
  Serious: Yes (Disabling)
  Sender: FDA-Public Use
  Company Number: None

PATIENT
  Age: 24 Year
  Sex: Male
  Weight: 86.18 kg

DRUGS (7)
  1. BUPROPRION [Concomitant]
     Active Substance: BUPROPION
  2. STRATTERA [Suspect]
     Active Substance: ATOMOXETINE HYDROCHLORIDE
     Indication: ATTENTION DEFICIT/HYPERACTIVITY DISORDER
     Dosage: 1 TABLET ONCE A DAY
     Route: 048
  3. KLONOPIN [Concomitant]
     Active Substance: CLONAZEPAM
  4. MULTIVITAMIN [Concomitant]
     Active Substance: VITAMINS
  5. FISH OIL [Concomitant]
     Active Substance: FISH OIL
  6. EVEKIO [Concomitant]
  7. ATIVAN [Concomitant]
     Active Substance: LORAZEPAM

REACTIONS (2)
  - Anorgasmia [None]
  - Retrograde ejaculation [None]

NARRATIVE: CASE EVENT DATE: 20130201
